FAERS Safety Report 21929194 (Version 1)
Quarter: 2023Q1

REPORT INFORMATION
  Report Type: Spontaneous
  Country: US (occurrence: US)
  Receive Date: 20230131
  Receipt Date: 20230131
  Transmission Date: 20230417
  Serious: No
  Sender: FDA-Public Use
  Company Number: US-drreddys-SPO/USA/23/0159468

PATIENT
  Age: 65 Year
  Sex: Female

DRUGS (12)
  1. LENALIDOMIDE [Suspect]
     Active Substance: LENALIDOMIDE
     Indication: Plasma cell myeloma
     Dosage: TAKE 1 CAPSULE BY MOUTH FOR 21 DAYS ON AND 7 DAYS OFF
     Route: 048
     Dates: start: 20221128
  2. IBUPROFEN TAB 200MG [Concomitant]
     Indication: Product used for unknown indication
  3. CLARITIN TAB 10MG [Concomitant]
     Indication: Product used for unknown indication
  4. DEXAMETHASONE [Concomitant]
     Active Substance: DEXAMETHASONE
     Indication: Product used for unknown indication
  5. ELDERBERRY CAP 500MG [Concomitant]
     Indication: Product used for unknown indication
  6. MULTIVITAMIN TAB [Concomitant]
     Indication: Product used for unknown indication
  7. PRILOSEC OTC TBE 20MG [Concomitant]
     Indication: Product used for unknown indication
  8. REVLIMID CAP 15MG [Concomitant]
     Indication: Product used for unknown indication
  9. TURMERIC TAB 500MG [Concomitant]
     Indication: Product used for unknown indication
  10. TYLENOL EXTR TAB 500MG [Concomitant]
     Indication: Product used for unknown indication
  11. VITAMIN D CAP 50 MCG [Concomitant]
     Indication: Product used for unknown indication
  12. ZINC TAB 50MG [Concomitant]
     Indication: Product used for unknown indication

REACTIONS (1)
  - Abdominal discomfort [Unknown]
